FAERS Safety Report 5908528-X (Version None)
Quarter: 2008Q3

REPORT INFORMATION
  Report Type: 
  Country: None (occurrence: None)
  Receive Date: 20080930
  Receipt Date: 20080916
  Transmission Date: 20090109
  Serious: No
  Sender: FDA-Public Use
  Company Number: ALL1-2008-02636

PATIENT
  Age: 66 Year
  Sex: Female
  Weight: 50.8 kg

DRUGS (4)
  1. VYVANSE [Suspect]
     Indication: ATTENTION DEFICIT/HYPERACTIVITY DISORDER
     Dosage: 70 MG, 1X/DAY:QD, ORAL; 50 MG, 1X/DAY:QD, ORAL; 70 MG, 1X/DAY:QD, ORAL
     Route: 048
     Dates: start: 20071001, end: 20080101
  2. VYVANSE [Suspect]
     Indication: ATTENTION DEFICIT/HYPERACTIVITY DISORDER
     Dosage: 70 MG, 1X/DAY:QD, ORAL; 50 MG, 1X/DAY:QD, ORAL; 70 MG, 1X/DAY:QD, ORAL
     Route: 048
     Dates: start: 20080101, end: 20080101
  3. VYVANSE [Suspect]
     Indication: ATTENTION DEFICIT/HYPERACTIVITY DISORDER
     Dosage: 70 MG, 1X/DAY:QD, ORAL; 50 MG, 1X/DAY:QD, ORAL; 70 MG, 1X/DAY:QD, ORAL
     Route: 048
     Dates: start: 20080101
  4. SUDAFED/00070002/ (OXYMETAZOLINE HYDROCHLORIDE) [Concomitant]

REACTIONS (6)
  - ANOREXIA [None]
  - BRONCHITIS [None]
  - DISTURBANCE IN ATTENTION [None]
  - HYPERSENSITIVITY [None]
  - KIDNEY INFECTION [None]
  - WEIGHT DECREASED [None]
